FAERS Safety Report 10640350 (Version 1)
Quarter: 2014Q4

REPORT INFORMATION
  Report Type: Spontaneous
  Country: US (occurrence: None)
  Receive Date: 20141205
  Receipt Date: 20141205
  Transmission Date: 20150529
  Serious: No
  Sender: FDA-Public Use
  Company Number: None

PATIENT
  Age: 27 Year
  Sex: Female
  Weight: 46.3 kg

DRUGS (1)
  1. INTRON A [Suspect]
     Active Substance: INTERFERON ALFA-2B
     Dates: start: 20140714, end: 20141128

REACTIONS (3)
  - Exposure during pregnancy [None]
  - Adverse event [None]
  - Pregnancy [None]

NARRATIVE: CASE EVENT DATE: 20141201
